FAERS Safety Report 6051934-6 (Version None)
Quarter: 2009Q1

REPORT INFORMATION
  Report Type: 
  Country: None (occurrence: None)
  Receive Date: 20090122
  Receipt Date: 20090122
  Transmission Date: 20090719
  Serious: No
  Sender: FDA-Public Use
  Company Number: None

PATIENT
  Age: 87 Year
  Sex: Female

DRUGS (1)
  1. LEVAQUIN IN DEXTROSE 5% [Suspect]
     Indication: SURGERY
     Dosage: 500 MG DAILY IV PIGGYBACK
     Route: 042
     Dates: start: 20090105, end: 20090106

REACTIONS (1)
  - RASH MACULO-PAPULAR [None]
